FAERS Safety Report 12204672 (Version 3)
Quarter: 2016Q2

REPORT INFORMATION
  Report Type: Spontaneous
  Country: MT (occurrence: GB)
  Receive Date: 20160323
  Receipt Date: 20160421
  Transmission Date: 20160815
  Serious: Yes (Other)
  Sender: FDA-Public Use
  Company Number: GB-JNJFOC-20160113584

PATIENT
  Sex: Male

DRUGS (1)
  1. XARELTO [Suspect]
     Active Substance: RIVAROXABAN
     Indication: PRODUCT USED FOR UNKNOWN INDICATION
     Route: 048
     Dates: start: 201510

REACTIONS (13)
  - Conjunctival haemorrhage [Not Recovered/Not Resolved]
  - Ocular hyperaemia [Not Recovered/Not Resolved]
  - Headache [Recovering/Resolving]
  - Visual acuity reduced [Unknown]
  - Eye contusion [Not Recovered/Not Resolved]
  - Loss of libido [Not Recovered/Not Resolved]
  - Amnesia [Unknown]
  - Pain [Unknown]
  - Eye haemorrhage [Not Recovered/Not Resolved]
  - Asthenia [Not Recovered/Not Resolved]
  - General physical health deterioration [Unknown]
  - Mental impairment [Not Recovered/Not Resolved]
  - Respiratory tract congestion [Recovered/Resolved]
